FAERS Safety Report 5282175-8 (Version None)
Quarter: 2007Q1

REPORT INFORMATION
  Report Type: 
  Country: None (occurrence: None)
  Receive Date: 20070330
  Receipt Date: 20070320
  Transmission Date: 20070707
  Serious: Yes (Hospitalization, Other)
  Sender: FDA-Public Use
  Company Number: US-PFIZER INC-2007007954

PATIENT
  Sex: Female
  Weight: 76.7 kg

DRUGS (5)
  1. NEURONTIN [Suspect]
     Indication: NERVE INJURY
     Dates: start: 20040101, end: 20060901
  2. NEURONTIN [Suspect]
     Indication: PARAESTHESIA
  3. LYRICA [Suspect]
     Indication: NERVE INJURY
     Dates: start: 20060701, end: 20070128
  4. XANAX [Concomitant]
     Indication: ANXIETY
  5. XANAX [Concomitant]
     Indication: SLEEP DISORDER

REACTIONS (11)
  - DEHYDRATION [None]
  - DRUG INEFFECTIVE [None]
  - FEELING ABNORMAL [None]
  - GASTROENTERITIS [None]
  - LOSS OF CONSCIOUSNESS [None]
  - MALAISE [None]
  - PAIN [None]
  - SOMNOLENCE [None]
  - THINKING ABNORMAL [None]
  - URTICARIA [None]
  - VISUAL DISTURBANCE [None]
